FAERS Safety Report 4881286-6 (Version None)
Quarter: 2005Q4

REPORT INFORMATION
  Report Type: 
  Country: None (occurrence: None)
  Receive Date: 20051212
  Receipt Date: 20050210
  Transmission Date: 20060501
  Serious: Yes (Hospitalization)
  Sender: FDA-Public Use
  Company Number: 05P-163-0290868-00

PATIENT
  Sex: 0

DRUGS (3)
  1. TARKA [Suspect]
  2. BETA BLOCKER [Suspect]
  3. DIABETES MEDICATION [Concomitant]

REACTIONS (2)
  - ATRIOVENTRICULAR BLOCK [None]
  - DRUG INTERACTION [None]
